FAERS Safety Report 6644443-4 (Version None)
Quarter: 2010Q1

REPORT INFORMATION
  Report Type: 
  Country: None (occurrence: None)
  Receive Date: 20100304
  Receipt Date: 20090714
  Transmission Date: 20100710
  Serious: Yes (Hospitalization)
  Sender: FDA-Public Use
  Company Number: US-003133

PATIENT
  Age: 85 Year
  Sex: Male
  Weight: 88 kg

DRUGS (2)
  1. ISOVUE-200 [Suspect]
     Indication: LUMBAR SPINAL STENOSIS
     Dosage: 20ML QD INTRATHECAL
     Route: 037
     Dates: start: 20090713, end: 20090713
  2. ISOVUE-200 [Suspect]
     Indication: SPINAL MYELOGRAM
     Dosage: 20ML QD INTRATHECAL
     Route: 037
     Dates: start: 20090713, end: 20090713

REACTIONS (1)
  - MENINGITIS [None]
